FAERS Safety Report 23497449 (Version 3)
Quarter: 2024Q1

REPORT INFORMATION
  Report Type: Spontaneous
  Country: US (occurrence: US)
  Receive Date: 20240208
  Receipt Date: 20240318
  Transmission Date: 20240410
  Serious: No
  Sender: FDA-Public Use
  Company Number: US-PFIZER INC-PV202400010032

PATIENT
  Age: 11 Year
  Sex: Male
  Weight: 26.76 kg

DRUGS (1)
  1. GENOTROPIN [Suspect]
     Active Substance: SOMATROPIN
     Indication: Growth hormone deficiency
     Dosage: 1.2MG INJECTION EVERY NIGHT
     Dates: start: 2023

REACTIONS (4)
  - Drug dose omission by device [Unknown]
  - Device difficult to use [Unknown]
  - Device information output issue [Unknown]
  - Device mechanical issue [Unknown]
